FAERS Safety Report 15430293 (Version 2)
Quarter: 2019Q4

REPORT INFORMATION
  Report Type: Spontaneous
  Country: CZ (occurrence: CZ)
  Receive Date: 20180926
  Receipt Date: 20191202
  Transmission Date: 20200122
  Serious: Yes (Death, Life-Threatening, Hospitalization, Other)
  Sender: FDA-Public Use
  Company Number: CZ-MYLANLABS-2018M1070983

PATIENT
  Age: 25 Year
  Sex: Male

DRUGS (3)
  1. ADENOSINE. [Suspect]
     Active Substance: ADENOSINE
     Indication: VENTRICULAR TACHYCARDIA
     Dosage: 12 MILLIGRAM
     Route: 042
  2. ESCITALOPRAM [Suspect]
     Active Substance: ESCITALOPRAM OXALATE
     Indication: DEPRESSION
     Dosage: 250 MILLIGRAM, TOTAL
     Route: 065
  3. ADENOSINE. [Suspect]
     Active Substance: ADENOSINE
     Indication: ELECTROCARDIOGRAM QRS COMPLEX ABNORMAL

REACTIONS (12)
  - Overdose [Fatal]
  - Ventricular tachycardia [Recovered/Resolved]
  - Completed suicide [Fatal]
  - Brain death [Fatal]
  - Ventricular fibrillation [Recovered/Resolved]
  - Electrocardiogram QRS complex abnormal [Recovered/Resolved]
  - Serotonin syndrome [Fatal]
  - Cardiac fibrillation [Recovered/Resolved]
  - Suicide attempt [Unknown]
  - Toxicity to various agents [Fatal]
  - Drug ineffective [Unknown]
  - Coma [Fatal]
